FAERS Safety Report 5066677-5 (Version None)
Quarter: 2006Q3

REPORT INFORMATION
  Report Type: 
  Country: None (occurrence: None)
  Receive Date: 20060801
  Receipt Date: 20060621
  Transmission Date: 20061208
  Serious: Yes (Other)
  Sender: FDA-Public Use
  Company Number: US-GLAXOSMITHKLINE-A0609884A

PATIENT
  Age: 52 Year
  Sex: Male
  Weight: 75.9 kg

DRUGS (2)
  1. FLONASE [Suspect]
     Route: 045
  2. NO CONCURRENT MEDICATION [Concomitant]

REACTIONS (3)
  - CATARACT SUBCAPSULAR [None]
  - EYE DISORDER [None]
  - VISION BLURRED [None]
